FAERS Safety Report 21605234 (Version 2)
Quarter: 2023Q1

REPORT INFORMATION
  Report Type: Report from Study
  Country: US (occurrence: US)
  Receive Date: 20221116
  Receipt Date: 20230111
  Transmission Date: 20230417
  Serious: No
  Sender: FDA-Public Use
  Company Number: US-ABBVIE-4203614

PATIENT
  Sex: Female

DRUGS (3)
  1. RINVOQ [Suspect]
     Active Substance: UPADACITINIB
     Indication: Rheumatoid arthritis
     Route: 048
     Dates: start: 20220820, end: 202210
  2. covid-19 vaccine [Concomitant]
     Indication: COVID-19 immunisation
     Dosage: 1 IN 1 ONCE
     Route: 030
  3. covid-19 vaccine [Concomitant]
     Indication: COVID-19 immunisation
     Dosage: 1 IN 1 ONCE; BOOSTER DOSE
     Route: 030

REACTIONS (3)
  - Sinusitis [Recovering/Resolving]
  - Respiratory tract infection [Unknown]
  - Alopecia [Unknown]
